FAERS Safety Report 17318033 (Version 2)
Quarter: 2020Q1

REPORT INFORMATION
  Report Type: Report from Study
  Country: US (occurrence: US)
  Receive Date: 20200124
  Receipt Date: 20200222
  Transmission Date: 20200409
  Serious: No
  Sender: FDA-Public Use
  Company Number: NVSC2020US017901

PATIENT
  Age: 35 Year
  Sex: Female

DRUGS (2)
  1. COSENTYX [Suspect]
     Active Substance: SECUKINUMAB
     Indication: PSORIASIS
     Dosage: 300 MG, QMO
     Route: 058
  2. COSENTYX [Suspect]
     Active Substance: SECUKINUMAB
     Dosage: 300 MG, QW
     Route: 058

REACTIONS (10)
  - Malaise [Unknown]
  - Sinusitis [Recovered/Resolved]
  - Cough [Recovered/Resolved]
  - Influenza like illness [Unknown]
  - Ill-defined disorder [Recovered/Resolved]
  - Vomiting [Recovered/Resolved]
  - Ear infection [Recovered/Resolved]
  - Oropharyngeal pain [Recovered/Resolved]
  - Pyrexia [Recovered/Resolved]
  - Eye colour change [Recovered/Resolved]

NARRATIVE: CASE EVENT DATE: 20200119
